FAERS Safety Report 6703408-4 (Version None)
Quarter: 2010Q2

REPORT INFORMATION
  Report Type: 
  Country: None (occurrence: None)
  Receive Date: 20100430
  Receipt Date: 20100421
  Transmission Date: 20101027
  Serious: Yes (Life-Threatening, Other)
  Sender: FDA-Public Use
  Company Number: US-NOVOPROD-307510

PATIENT
  Age: 64 Year
  Sex: Male

DRUGS (3)
  1. NOVOLIN N [Suspect]
     Indication: DIABETES MELLITUS
     Dosage: 75 IU, BID
  2. NOVOLIN R [Suspect]
     Indication: DIABETES MELLITUS
     Dosage: 75 IU, BID
  3. LANTUS [Concomitant]
     Indication: DIABETES MELLITUS
     Dosage: UNK
     Dates: start: 20100201

REACTIONS (4)
  - ANEURYSM [None]
  - CARDIO-RESPIRATORY ARREST [None]
  - COMA [None]
  - DIABETES MELLITUS INADEQUATE CONTROL [None]
